FAERS Safety Report 9958099 (Version 1)
Quarter: 2014Q1

REPORT INFORMATION
  Report Type: Report from Study
  Country: US (occurrence: US)
  Receive Date: 20140304
  Receipt Date: 20140304
  Transmission Date: 20141002
  Serious: No
  Sender: FDA-Public Use
  Company Number: US-ABBVIE-13P-163-1096007-00

PATIENT
  Age: 29 Year
  Sex: Female

DRUGS (8)
  1. HUMIRA [Suspect]
     Indication: COLITIS ULCERATIVE
     Dates: start: 201207
  2. HUMIRA [Suspect]
     Dates: start: 201210
  3. MULTIVITAMINS [Concomitant]
     Indication: PRODUCT USED FOR UNKNOWN INDICATION
  4. VITAMIN D [Concomitant]
     Indication: PRODUCT USED FOR UNKNOWN INDICATION
  5. FOLIC ACID [Concomitant]
     Indication: PRODUCT USED FOR UNKNOWN INDICATION
     Dosage: DAILY
  6. ZYRTEC OVER THE COUNTER [Concomitant]
     Indication: HYPERSENSITIVITY
     Dosage: DAILY
  7. VENTOLIN [Concomitant]
     Indication: ASTHMA
  8. EPI PEN [Concomitant]
     Indication: PROPHYLAXIS

REACTIONS (1)
  - Injection site pain [Not Recovered/Not Resolved]
